FAERS Safety Report 14210289 (Version 1)
Quarter: 2017Q4

REPORT INFORMATION
  Report Type: Spontaneous
  Country: PT (occurrence: PT)
  Receive Date: 20171121
  Receipt Date: 20171121
  Transmission Date: 20180321
  Serious: Yes (Other)
  Sender: FDA-Public Use
  Company Number: PT-MYLANLABS-2017M1073262

PATIENT
  Age: 73 Year
  Sex: Male

DRUGS (3)
  1. ASCORBIC ACID. [Suspect]
     Active Substance: ASCORBIC ACID
     Indication: PRODUCT USED FOR UNKNOWN INDICATION
     Dosage: HIGH DOSE, FOR PAST 10 YEARS
     Route: 042
  2. EDETIC ACID [Suspect]
     Active Substance: EDETIC ACID
     Indication: ATHEROSCLEROSIS PROPHYLAXIS
     Dosage: FOR PAST 10 YEARS
     Route: 048
  3. LITHIUM. [Concomitant]
     Active Substance: LITHIUM
     Indication: PRODUCT USED FOR UNKNOWN INDICATION
     Dosage: FOR PAST 10 YEARS
     Route: 065

REACTIONS (2)
  - Acute kidney injury [Unknown]
  - Crystal nephropathy [Unknown]
